FAERS Safety Report 13335237 (Version 1)
Quarter: 2017Q1

REPORT INFORMATION
  Report Type: Spontaneous
  Country: US (occurrence: US)
  Receive Date: 20170314
  Receipt Date: 20170314
  Transmission Date: 20170428
  Serious: No
  Sender: FDA-Public Use
  Company Number: US-GALDERMA-US16000351

PATIENT
  Age: 29 Year
  Sex: Female

DRUGS (4)
  1. OIL OF OLAY NORMAL SKIN FACE LOTION [Concomitant]
     Indication: DRY SKIN PROPHYLAXIS
     Route: 061
  2. NEUTROGENA FACIAL WASH [Concomitant]
     Indication: THERAPEUTIC SKIN CARE TOPICAL
     Route: 061
  3. CLEARASIL MORNING BURST FACIAL WASH [Concomitant]
     Indication: THERAPEUTIC SKIN CARE TOPICAL
     Route: 061
  4. TRI-LUMA [Suspect]
     Active Substance: FLUOCINOLONE ACETONIDE\HYDROQUINONE\TRETINOIN
     Indication: PIGMENTATION DISORDER
     Route: 061
     Dates: start: 20151113, end: 20151117

REACTIONS (7)
  - Rash erythematous [Not Recovered/Not Resolved]
  - Product use issue [Not Recovered/Not Resolved]
  - Skin exfoliation [Recovered/Resolved]
  - Discomfort [Recovered/Resolved]
  - Dry skin [Not Recovered/Not Resolved]
  - Erythema [Recovered/Resolved]
  - Skin burning sensation [Not Recovered/Not Resolved]

NARRATIVE: CASE EVENT DATE: 20151106
